FAERS Safety Report 5244581-7 (Version None)
Quarter: 2007Q1

REPORT INFORMATION
  Report Type: 
  Country: None (occurrence: None)
  Receive Date: 20070222
  Receipt Date: 20070213
  Transmission Date: 20070707
  Serious: Yes (Other)
  Sender: FDA-Public Use
  Company Number: GB-AMGEN-UK211628

PATIENT
  Age: 34 Year
  Sex: Female

DRUGS (3)
  1. ARANESP [Suspect]
     Indication: RENAL FAILURE CHRONIC
     Dates: start: 20020615
  2. EPREX [Suspect]
     Dates: start: 20020615
  3. NEORECORMON [Suspect]
     Dates: start: 20030215

REACTIONS (1)
  - HAEMOGLOBIN DECREASED [None]
